FAERS Safety Report 6151350-2 (Version None)
Quarter: 2009Q2

REPORT INFORMATION
  Report Type: 
  Country: None (occurrence: None)
  Receive Date: 20090410
  Receipt Date: 20090409
  Transmission Date: 20091009
  Serious: Yes (Death)
  Sender: FDA-Public Use
  Company Number: CH-JNJFOC-20090402255

PATIENT
  Age: 50 Year
  Sex: Male
  Weight: 80 kg

DRUGS (8)
  1. HALDOL [Suspect]
     Route: 048
  2. HALDOL [Suspect]
     Indication: AFFECTIVE DISORDER
     Route: 048
  3. VALIUM [Suspect]
     Indication: DRUG USE FOR UNKNOWN INDICATION
     Route: 048
  4. KEPPRA [Suspect]
     Indication: DRUG USE FOR UNKNOWN INDICATION
     Route: 048
  5. PRINIVIL [Suspect]
     Indication: DRUG USE FOR UNKNOWN INDICATION
     Route: 048
  6. BECOTAL [Concomitant]
     Route: 048
  7. VITAMIN B1 TAB [Concomitant]
     Route: 048
  8. NIFEDIPINE [Concomitant]
     Route: 048

REACTIONS (3)
  - APNOEA [None]
  - CARDIAC ARREST [None]
  - EPILEPSY [None]
